APPROVED DRUG PRODUCT: BUTALBITAL, ASPIRIN AND CAFFEINE
Active Ingredient: ASPIRIN; BUTALBITAL; CAFFEINE
Strength: 325MG;50MG;40MG
Dosage Form/Route: CAPSULE;ORAL
Application: A078149 | Product #001 | TE Code: AA
Applicant: MPP PHARMA LLC
Approved: Jun 13, 2007 | RLD: No | RS: No | Type: RX